FAERS Safety Report 5343553-1 (Version None)
Quarter: 2007Q2

REPORT INFORMATION
  Report Type: 
  Country: None (occurrence: None)
  Receive Date: 20070531
  Receipt Date: 20070524
  Transmission Date: 20071010
  Serious: Yes (Life-Threatening)
  Sender: FDA-Public Use
  Company Number: 2007SP010116

PATIENT
  Age: 32 Year
  Sex: Female
  Weight: 58 kg

DRUGS (19)
  1. TEMODAL [Suspect]
     Indication: GLIOBLASTOMA MULTIFORME
     Dosage: SEE IMAGE
     Route: 048
     Dates: start: 20061026, end: 20061107
  2. TEMODAL [Suspect]
     Indication: GLIOBLASTOMA MULTIFORME
     Dosage: SEE IMAGE
     Route: 048
     Dates: start: 20061110, end: 20061206
  3. TEMODAL [Suspect]
     Indication: GLIOBLASTOMA MULTIFORME
     Dosage: SEE IMAGE
     Route: 048
     Dates: start: 20070209, end: 20070213
  4. TEMODAL [Suspect]
     Indication: GLIOBLASTOMA MULTIFORME
     Dosage: SEE IMAGE
     Route: 048
     Dates: start: 20070309, end: 20070313
  5. TEMODAL [Suspect]
     Indication: GLIOBLASTOMA MULTIFORME
     Dosage: SEE IMAGE
     Route: 048
     Dates: start: 20070406, end: 20070410
  6. DEPAKENE [Concomitant]
  7. GASTER D [Concomitant]
  8. MAGNESIUM OXIDE [Concomitant]
  9. MAGNESIUM OXIDE [Concomitant]
  10. NAUZELIN [Concomitant]
  11. EXCEGRAN [Concomitant]
  12. TAKEPRON OD [Concomitant]
  13. PREDONINE [Concomitant]
  14. GLYCEOL [Concomitant]
  15. DECADRON [Concomitant]
  16. RINDERON [Concomitant]
  17. NASEA [Concomitant]
  18. DEPAS [Concomitant]
  19. TEGRETOL [Concomitant]

REACTIONS (3)
  - DEHYDRATION [None]
  - ENTERITIS INFECTIOUS [None]
  - PLATELET COUNT DECREASED [None]
